FAERS Safety Report 9150117 (Version 1)
Quarter: 2013Q1

REPORT INFORMATION
  Report Type: Spontaneous
  Country: MX (occurrence: MX)
  Receive Date: 20130308
  Receipt Date: 20130308
  Transmission Date: 20140127
  Serious: Yes (Other)
  Sender: FDA-Public Use
  Company Number: PHHY2013MX021325

PATIENT
  Age: 42 Year
  Sex: Male

DRUGS (4)
  1. ONBREZ [Suspect]
     Indication: COUGH
     Dosage: 150 UG, DAILY
     Dates: start: 201201
  2. OMEPRAZOLE [Concomitant]
     Indication: EPIGASTRIC DISCOMFORT
     Dosage: 1 DF, DAILY
     Dates: start: 201301, end: 201302
  3. MIFLONIDE [Concomitant]
     Indication: ANTIINFLAMMATORY THERAPY
     Dosage: 2 DF, DAILY
     Dates: start: 201301
  4. COMBIVENT [Concomitant]
     Indication: DYSPNOEA
     Dosage: 2 DF, DAILY
     Dates: start: 201301

REACTIONS (7)
  - Pulmonary congestion [Not Recovered/Not Resolved]
  - Lung disorder [Not Recovered/Not Resolved]
  - Malaise [Not Recovered/Not Resolved]
  - Dyspnoea [Not Recovered/Not Resolved]
  - Tachycardia [Not Recovered/Not Resolved]
  - Cough [Not Recovered/Not Resolved]
  - Off label use [Unknown]
